FAERS Safety Report 6812509-1 (Version None)
Quarter: 2010Q3

REPORT INFORMATION
  Report Type: 
  Country: None (occurrence: None)
  Receive Date: 20100701
  Receipt Date: 20100628
  Transmission Date: 20110219
  Serious: Yes (Other)
  Sender: FDA-Public Use
  Company Number: US-ROXANE LABORATORIES, INC.-2010-RO-00769RO

PATIENT
  Age: 43 Year
  Sex: Female

DRUGS (8)
  1. CYCLOPHOSPHAMIDE [Suspect]
     Indication: WEGENER'S GRANULOMATOSIS
     Dates: start: 20050501
  2. PREDNISONE TAB [Suspect]
     Indication: WEGENER'S GRANULOMATOSIS
  3. PREDNISONE TAB [Suspect]
  4. METHOTREXATE [Suspect]
     Indication: WEGENER'S GRANULOMATOSIS
     Dates: end: 20041001
  5. AZATHIOPRINE [Suspect]
     Indication: WEGENER'S GRANULOMATOSIS
     Dates: start: 20041001, end: 20050501
  6. TRIMETHOPRIM [Suspect]
     Indication: WEGENER'S GRANULOMATOSIS
  7. SULFAMETHOXAZOLE [Suspect]
     Indication: WEGENER'S GRANULOMATOSIS
  8. ACYCLOVIR [Suspect]
     Indication: NASAL ULCER

REACTIONS (5)
  - ALOPECIA [None]
  - AMENORRHOEA [None]
  - NASAL SEPTUM PERFORATION [None]
  - NASAL ULCER [None]
  - RASH MACULAR [None]
